FAERS Safety Report 14248316 (Version 1)
Quarter: 2017Q4

REPORT INFORMATION
  Report Type: Spontaneous
  Country: CA (occurrence: CA)
  Receive Date: 20171202
  Receipt Date: 20171202
  Transmission Date: 20180321
  Serious: No
  Sender: FDA-Public Use
  Company Number: None

PATIENT
  Sex: Female
  Weight: 65.25 kg

DRUGS (6)
  1. MOMETASONE [Suspect]
     Active Substance: MOMETASONE
  2. CLOBETASOL [Suspect]
     Active Substance: CLOBETASOL
  3. HYDROCORTISONE. [Suspect]
     Active Substance: HYDROCORTISONE
  4. DESONIDE. [Suspect]
     Active Substance: DESONIDE
  5. BETAMETHOZ [Suspect]
     Active Substance: BETAMETHASONE DIPROPIONATE
  6. TOPICORT [Suspect]
     Active Substance: DESOXIMETASONE
     Indication: ECZEMA
     Route: 061

REACTIONS (19)
  - Pruritus [None]
  - Adrenal disorder [None]
  - Loss of personal independence in daily activities [None]
  - Oral herpes [None]
  - Staphylococcal infection [None]
  - Depression [None]
  - Secretion discharge [None]
  - Insomnia [None]
  - Diplopia [None]
  - Nausea [None]
  - Eczema [None]
  - Haemorrhage [None]
  - Impetigo [None]
  - Libido decreased [None]
  - Headache [None]
  - Impaired work ability [None]
  - Infection [None]
  - Anxiety [None]
  - Fatigue [None]
